FAERS Safety Report 6637698-3 (Version None)
Quarter: 2010Q1

REPORT INFORMATION
  Report Type: 
  Country: None (occurrence: None)
  Receive Date: 20100317
  Receipt Date: 20100312
  Transmission Date: 20100710
  Serious: Yes (Hospitalization)
  Sender: FDA-Public Use
  Company Number: US-WYE-H13885710

PATIENT
  Sex: Female
  Weight: 67.5 kg

DRUGS (12)
  1. TORISEL [Suspect]
     Indication: RECTAL CANCER METASTATIC
     Route: 042
     Dates: start: 20100222, end: 20100222
  2. ZOFRAN [Concomitant]
     Dosage: UNKNOWN
     Dates: start: 20100222
  3. PERIDEX [Concomitant]
     Dosage: UNKNOWN
     Dates: start: 20100222
  4. MORPHINE [Concomitant]
     Dosage: UNKNOWN
     Dates: start: 20100225
  5. ATIVAN [Concomitant]
     Dosage: UNKNOWN
     Dates: start: 20100222
  6. FLUCONAZOLE [Concomitant]
     Dosage: UNKNOWN
     Dates: start: 20100301
  7. PROCHLORPERAZINE EDISYLATE [Concomitant]
     Dosage: UNKNOWN
     Dates: start: 20100222
  8. COLACE [Concomitant]
     Dosage: UNKNOWN
     Dates: start: 20100222
  9. CELEXA [Concomitant]
     Dosage: UNKNOWN
     Dates: start: 20100222
  10. CETUXIMAB [Suspect]
     Indication: RECTAL CANCER METASTATIC
     Route: 042
     Dates: start: 20100222, end: 20100222
  11. CETUXIMAB [Suspect]
     Route: 042
     Dates: start: 20100215, end: 20100215
  12. LOMOTIL [Concomitant]
     Dosage: UNKNOWN
     Dates: start: 20100222

REACTIONS (3)
  - CANDIDIASIS [None]
  - DEHYDRATION [None]
  - STOMATITIS [None]
